FAERS Safety Report 7205370-7 (Version None)
Quarter: 2010Q4

REPORT INFORMATION
  Report Type: 
  Country: None (occurrence: None)
  Receive Date: 20101231
  Receipt Date: 20101222
  Transmission Date: 20110411
  Serious: Yes (Other)
  Sender: FDA-Public Use
  Company Number: US-US-EMD SERONO, INC.-7030762

PATIENT
  Sex: Female

DRUGS (8)
  1. REBIF [Suspect]
     Indication: MULTIPLE SCLEROSIS
     Route: 058
     Dates: end: 20100401
  2. REBIF [Suspect]
     Route: 058
     Dates: start: 20100401, end: 20101201
  3. REBIF [Suspect]
     Route: 058
     Dates: start: 20101201
  4. NUVIGIL [Concomitant]
     Indication: FATIGUE
     Dates: start: 20101201
  5. ASPIRIN [Concomitant]
     Indication: VENOUS INSUFFICIENCY
  6. IBUPROFEN [Concomitant]
     Indication: PREMEDICATION
  7. AMBIEN [Concomitant]
     Dates: start: 20100101
  8. LEXAPRO [Concomitant]

REACTIONS (17)
  - ALOPECIA [None]
  - ANXIETY [None]
  - ASTHENIA [None]
  - BLOOD PRESSURE ABNORMAL [None]
  - CERUMEN IMPACTION [None]
  - CRYING [None]
  - DIZZINESS [None]
  - DRY MOUTH [None]
  - DYSPNOEA [None]
  - ELECTROCARDIOGRAM ABNORMAL [None]
  - FATIGUE [None]
  - HEPATIC ENZYME ABNORMAL [None]
  - MALAISE [None]
  - NAUSEA [None]
  - PALPITATIONS [None]
  - SLEEP DISORDER [None]
  - VISION BLURRED [None]
